FAERS Safety Report 7027713-X (Version None)
Quarter: 2010Q4

REPORT INFORMATION
  Report Type: 
  Country: None (occurrence: None)
  Receive Date: 20101004
  Receipt Date: 20100924
  Transmission Date: 20110411
  Serious: Yes (Hospitalization)
  Sender: FDA-Public Use
  Company Number: US-ABBOTT-10P-163-0673573-00

PATIENT
  Sex: Male
  Weight: 81.72 kg

DRUGS (10)
  1. HUMIRA [Suspect]
     Indication: RHEUMATOID ARTHRITIS
     Dates: start: 20050101
  2. HUMIRA [Suspect]
     Indication: PSORIATIC ARTHROPATHY
  3. METFORMIN [Concomitant]
     Indication: DIABETES MELLITUS
  4. INSULIN [Concomitant]
     Indication: DIABETES MELLITUS
  5. LISINOPRIL [Concomitant]
     Indication: HYPERTENSION
  6. METOPROLOL TARTRATE [Concomitant]
     Indication: HYPERTENSION
  7. SIMVASTATIN [Concomitant]
     Indication: BLOOD CHOLESTEROL INCREASED
  8. GABAPENTIN [Concomitant]
     Indication: NEUROPATHY PERIPHERAL
  9. ELAVIL [Concomitant]
     Indication: SLEEP DISORDER THERAPY
  10. MORPHINE [Concomitant]
     Indication: PAIN

REACTIONS (6)
  - GOUT [None]
  - JOINT STIFFNESS [None]
  - PALATAL OEDEMA [None]
  - PHARYNGEAL ABSCESS [None]
  - RHEUMATOID ARTHRITIS [None]
  - WHITE BLOOD CELL COUNT INCREASED [None]
